FAERS Safety Report 11419767 (Version 3)
Quarter: 2015Q4

REPORT INFORMATION
  Report Type: Spontaneous
  Country: US (occurrence: US)
  Receive Date: 20150826
  Receipt Date: 20151008
  Transmission Date: 20160304
  Serious: Yes (Hospitalization)
  Sender: FDA-Public Use
  Company Number: US-ALLERGAN-1516712US

PATIENT
  Age: 5 Year
  Sex: Male
  Weight: 19.5 kg

DRUGS (2)
  1. BOTOX [Suspect]
     Active Substance: ONABOTULINUMTOXINA
     Indication: JOINT CONTRACTURE
  2. BOTOX [Suspect]
     Active Substance: ONABOTULINUMTOXINA
     Indication: QUADRIPARESIS
     Dosage: 200 UNITS, SINGLE
     Route: 030
     Dates: start: 20150722, end: 20150722

REACTIONS (4)
  - Respiratory arrest [Recovered/Resolved]
  - Respiratory failure [Not Recovered/Not Resolved]
  - Supraventricular tachycardia [Unknown]
  - Pneumonia [Not Recovered/Not Resolved]

NARRATIVE: CASE EVENT DATE: 2015
